FAERS Safety Report 4900641-9 (Version None)
Quarter: 2006Q1

REPORT INFORMATION
  Report Type: 
  Country: None (occurrence: None)
  Receive Date: 20060203
  Receipt Date: 20060123
  Transmission Date: 20060701
  Serious: Yes (Hospitalization)
  Sender: FDA-Public Use
  Company Number: IE-BRISTOL-MYERS SQUIBB COMPANY-13257019

PATIENT
  Age: 52 Year
  Sex: Male

DRUGS (14)
  1. CYCLOPHOSPHAMIDE [Suspect]
     Indication: B-CELL LYMPHOMA
  2. DOXORUBICIN [Suspect]
     Indication: B-CELL LYMPHOMA
  3. VINCRISTINE SULFATE [Suspect]
     Indication: B-CELL LYMPHOMA
  4. PREDNISOLONE [Suspect]
     Indication: B-CELL LYMPHOMA
  5. PEGFILGRASTIM [Suspect]
  6. RITUXIMAB [Suspect]
  7. CARBAMAZEPINE [Concomitant]
  8. OMEPRAZOLE [Concomitant]
  9. PRAVASTATIN SODIUM [Concomitant]
  10. METOPROLOL [Concomitant]
  11. FRUSEMIDE [Concomitant]
  12. SPIRONOLACTONE [Concomitant]
  13. WARFARIN [Concomitant]
  14. THYROXINE [Concomitant]

REACTIONS (2)
  - CRYPTOGENIC ORGANIZING PNEUMONIA [None]
  - RESPIRATORY FAILURE [None]
